FAERS Safety Report 8739872 (Version 2)
Quarter: 2014Q3

REPORT INFORMATION
  Report Type: Spontaneous
  Country: US (occurrence: US)
  Receive Date: 20120823
  Receipt Date: 20140812
  Transmission Date: 20150326
  Serious: Yes (Hospitalization, Disabling, Other)
  Sender: FDA-Public Use
  Company Number: US-009507513-2011SP058562

PATIENT
  Sex: Female
  Weight: 135.15 kg

DRUGS (2)
  1. COUMADIN [Suspect]
     Active Substance: WARFARIN SODIUM
     Indication: PROPHYLAXIS
     Dosage: UNK
     Dates: start: 20091219
  2. NUVARING [Suspect]
     Active Substance: ETHINYL ESTRADIOL\ETONOGESTREL
     Indication: CONTRACEPTION
     Dosage: UNK
     Route: 067
     Dates: start: 200902, end: 200912

REACTIONS (12)
  - Nausea [Unknown]
  - Hypertension [Unknown]
  - Coagulopathy [Unknown]
  - Deep vein thrombosis [Unknown]
  - Abdominal pain [Unknown]
  - Chest pain [Unknown]
  - Pain in extremity [Unknown]
  - Pulmonary embolism [Unknown]
  - Treatment noncompliance [Unknown]
  - Migraine [Unknown]
  - Muscle strain [Unknown]
  - Cough [Unknown]

NARRATIVE: CASE EVENT DATE: 200911
